FAERS Safety Report 5396019-7 (Version None)
Quarter: 2007Q3

REPORT INFORMATION
  Report Type: 
  Country: None (occurrence: None)
  Receive Date: 20070724
  Receipt Date: 20070712
  Transmission Date: 20080115
  Serious: Yes (Hospitalization)
  Sender: FDA-Public Use
  Company Number: US-PFIZER INC-2007058516

PATIENT
  Sex: Female
  Weight: 70.3 kg

DRUGS (3)
  1. CELEBREX [Suspect]
     Indication: ARTHRITIS
     Dates: start: 20001101, end: 20020101
  2. ASPIRIN [Concomitant]
  3. VIOXX [Concomitant]

REACTIONS (2)
  - CHEST PAIN [None]
  - PAIN [None]
